FAERS Safety Report 24461368 (Version 2)
Quarter: 2024Q4

REPORT INFORMATION
  Report Type: Spontaneous
  Country: US (occurrence: US)
  Receive Date: 20241018
  Receipt Date: 20241126
  Transmission Date: 20250115
  Serious: Yes (Other)
  Sender: BRISTOL-MYERS SQUIBB COMPANY
  Company Number: US-BRISTOL-MYERS SQUIBB COMPANY-2024-164269

PATIENT
  Age: 62 Year
  Sex: Female

DRUGS (1)
  1. POMALYST [Suspect]
     Active Substance: POMALIDOMIDE
     Indication: Plasma cell myeloma
     Dosage: QD FOR 14 DAYS ON, 14 DAYS OFF
     Route: 048

REACTIONS (8)
  - Urticaria [Unknown]
  - Pruritus [Unknown]
  - Rash [Unknown]
  - Hallucination [Unknown]
  - Eye pain [Unknown]
  - Hypotension [Unknown]
  - Body temperature increased [Unknown]
  - Off label use [Unknown]
